FAERS Safety Report 14019514 (Version 1)
Quarter: 2017Q3

REPORT INFORMATION
  Report Type: Report from Study
  Country: CL (occurrence: CL)
  Receive Date: 20170928
  Receipt Date: 20170928
  Transmission Date: 20171128
  Serious: Yes (Death)
  Sender: FDA-Public Use
  Company Number: CL-BAUSCH-BL-2017-027965

PATIENT
  Sex: Male
  Weight: 85 kg

DRUGS (1)
  1. NORMIX COMPRIMIDOS RECUBIERDOS 200 MG [Suspect]
     Active Substance: RIFAXIMIN
     Indication: HEPATITIS C
     Route: 048
     Dates: start: 2010, end: 20140531

REACTIONS (2)
  - Multiple organ dysfunction syndrome [Fatal]
  - Intentional product use issue [Unknown]
